FAERS Safety Report 4935206-6 (Version None)
Quarter: 2006Q1

REPORT INFORMATION
  Report Type: 
  Country: None (occurrence: None)
  Receive Date: 20060302
  Receipt Date: 20060217
  Transmission Date: 20060701
  Serious: Yes (Other)
  Sender: FDA-Public Use
  Company Number: 2006000922

PATIENT
  Age: 54 Year
  Sex: Male
  Weight: 99.7913 kg

DRUGS (1)
  1. VIAGRA [Suspect]
     Indication: ERECTILE DYSFUNCTION
     Dosage: ORAL
     Route: 048
     Dates: start: 19990101, end: 20000101

REACTIONS (5)
  - ANGINA PECTORIS [None]
  - CORONARY ARTERY OCCLUSION [None]
  - STENT OCCLUSION [None]
  - STENT PLACEMENT [None]
  - SURGICAL PROCEDURE REPEATED [None]
